FAERS Safety Report 21171982 (Version 1)
Quarter: 2022Q3

REPORT INFORMATION
  Report Type: Spontaneous
  Country: US (occurrence: US)
  Receive Date: 20220804
  Receipt Date: 20220804
  Transmission Date: 20221026
  Serious: Yes (Hospitalization, Other)
  Sender: FDA-Public Use
  Company Number: US-GLAXOSMITHKLINE-US2022GSK114483

PATIENT

DRUGS (6)
  1. LITHIUM [Suspect]
     Active Substance: LITHIUM
     Indication: Autism spectrum disorder
     Dosage: UNK
  2. LITHIUM [Suspect]
     Active Substance: LITHIUM
     Indication: Affective disorder
  3. LAMOTRIGINE [Suspect]
     Active Substance: LAMOTRIGINE
     Indication: Epilepsy
     Dosage: 150 MG, BID (SUPRA-THERAPEUTIC)
     Route: 048
  4. LAMOTRIGINE [Suspect]
     Active Substance: LAMOTRIGINE
     Dosage: 100 MG, BID
     Route: 048
  5. LAMOTRIGINE [Suspect]
     Active Substance: LAMOTRIGINE
     Dosage: 100 MG, QD
     Route: 048
  6. LAMOTRIGINE [Suspect]
     Active Substance: LAMOTRIGINE
     Dosage: 150 MG QHS
     Route: 048

REACTIONS (7)
  - Toxicity to various agents [Unknown]
  - Nephrotic syndrome [Unknown]
  - Lethargy [Recovered/Resolved]
  - Vomiting [Unknown]
  - Gait disturbance [Recovered/Resolved]
  - Oedema peripheral [Unknown]
  - Hyperlipidaemia [Unknown]
